FAERS Safety Report 26070470 (Version 1)
Quarter: 2025Q4

REPORT INFORMATION
  Report Type: Spontaneous
  Country: US (occurrence: US)
  Receive Date: 20251120
  Receipt Date: 20251120
  Transmission Date: 20260117
  Serious: Yes (Other)
  Sender: SANOFI AVENTIS
  Company Number: US-SA-2025SA347197

PATIENT
  Sex: Female

DRUGS (11)
  1. DUPIXENT [Suspect]
     Active Substance: DUPILUMAB
     Indication: Dermatitis allergic
     Dosage: 300 MG, QOW
     Route: 058
     Dates: start: 20230907
  2. AMMONIUM LACTATE [Concomitant]
     Active Substance: AMMONIUM LACTATE
  3. AQUAPHOR HEALING [Concomitant]
     Active Substance: PETROLATUM
  4. ASPIRIN [Concomitant]
     Active Substance: ASPIRIN
  5. AVEENO ECZEMA THERAPY [Concomitant]
  6. VITAMIN B COMPLEX [Concomitant]
     Active Substance: CYANOCOBALAMIN\DEXPANTHENOL\NIACINAMIDE\PYRIDOXINE HYDROCHLORIDE\RIBOFLAVIN 5^-PHOSPHATE SODIUM\THIA
  7. CITALOPRAM [Concomitant]
     Active Substance: CITALOPRAM
  8. CLOBETASOL [Concomitant]
     Active Substance: CLOBETASOL
  9. CYCLOBENZAPRINE [Concomitant]
     Active Substance: CYCLOBENZAPRINE
  10. HYDROCODONE\IBUPROFEN [Concomitant]
     Active Substance: HYDROCODONE\IBUPROFEN
  11. MELOXICAM [Concomitant]
     Active Substance: MELOXICAM

REACTIONS (5)
  - Crohn^s disease [Unknown]
  - Infection [Unknown]
  - Dry skin [Unknown]
  - Skin fissures [Unknown]
  - Smear cervix abnormal [Unknown]

NARRATIVE: CASE EVENT DATE: 20250901
